FAERS Safety Report 23760699 (Version 1)
Quarter: 2024Q2

REPORT INFORMATION
  Report Type: Spontaneous
  Country: US (occurrence: US)
  Receive Date: 20240419
  Receipt Date: 20240419
  Transmission Date: 20240715
  Serious: Yes (Other)
  Sender: FDA-Public Use
  Company Number: US-SANOFI-02015491

PATIENT

DRUGS (2)
  1. DUPIXENT [Suspect]
     Active Substance: DUPILUMAB
     Indication: Dermatitis atopic
     Dosage: UNK UNK, 1X (LOADING DOSE)
  2. DUPIXENT [Suspect]
     Active Substance: DUPILUMAB
     Dosage: UNK, (MAINTENANCE DOSE)

REACTIONS (2)
  - Syncope [Unknown]
  - Injection site reaction [Unknown]
